FAERS Safety Report 18559873 (Version 1)
Quarter: 2020Q4

REPORT INFORMATION
  Report Type: Spontaneous
  Country: US (occurrence: US)
  Receive Date: 20201130
  Receipt Date: 20201130
  Transmission Date: 20210114
  Serious: Yes (Other)
  Sender: FDA-Public Use
  Company Number: US-PFIZER INC-2019010161

PATIENT
  Age: 68 Year
  Sex: Female

DRUGS (1)
  1. RAPAMUNE [Suspect]
     Active Substance: SIROLIMUS
     Indication: LIVER TRANSPLANT
     Dosage: 3 MG, 1X/DAY (ONCE DAILY IN THE MORNING)
     Route: 048

REACTIONS (4)
  - Malaise [Unknown]
  - Off label use [Unknown]
  - Renal impairment [Unknown]
  - Product use in unapproved indication [Unknown]
